FAERS Safety Report 25755804 (Version 1)
Quarter: 2025Q3

REPORT INFORMATION
  Report Type: Spontaneous
  Country: US (occurrence: None)
  Receive Date: 20250902
  Receipt Date: 20250902
  Transmission Date: 20251020
  Serious: Yes (Other)
  Sender: FDA-CTU
  Company Number: None

PATIENT
  Age: 66 Year
  Sex: Female
  Weight: 70.2 kg

DRUGS (13)
  1. ZEPBOUND [Suspect]
     Active Substance: TIRZEPATIDE
     Indication: Cardiac disorder
     Route: 058
     Dates: start: 20250717, end: 20250821
  2. ATENOLOL [Concomitant]
     Active Substance: ATENOLOL
  3. LOSARTAN [Concomitant]
     Active Substance: LOSARTAN
  4. ADVAIR HFA [Concomitant]
     Active Substance: FLUTICASONE PROPIONATE\SALMETEROL XINAFOATE
  5. Biote Bioidentical Hormone Replacement Therapy [Concomitant]
  6. MINOXIDIL [Concomitant]
     Active Substance: MINOXIDIL
  7. Spironlactone [Concomitant]
  8. PROGESTERONE [Concomitant]
     Active Substance: PROGESTERONE
  9. VITAMIN D3 [Concomitant]
     Active Substance: CHOLECALCIFEROL
  10. B12 [Concomitant]
  11. BIOTIN [Concomitant]
     Active Substance: BIOTIN
  12. PRILOSEC [Concomitant]
     Active Substance: OMEPRAZOLE MAGNESIUM
  13. ALIGN [Concomitant]
     Active Substance: BIFIDOBACTERIUM LONGUM SUBSP. INFANTIS

REACTIONS (2)
  - Angina pectoris [None]
  - Therapy cessation [None]

NARRATIVE: CASE EVENT DATE: 20250730
